FAERS Safety Report 24814780 (Version 1)
Quarter: 2025Q1

REPORT INFORMATION
  Report Type: Other
  Country: ES (occurrence: ES)
  Receive Date: 20250107
  Receipt Date: 20250107
  Transmission Date: 20250408
  Serious: Yes (Other)
  Sender: B BRAUN
  Company Number: ES-B.Braun Medical Inc.-2168574

PATIENT
  Age: 25 Year
  Sex: Female

DRUGS (6)
  1. ACETAMINOPHEN [Suspect]
     Active Substance: ACETAMINOPHEN
     Indication: Pain
  2. UNSPECIFIED INGREDIENT [Concomitant]
     Active Substance: UNSPECIFIED INGREDIENT
  3. AZATHIOPRINE [Concomitant]
     Active Substance: AZATHIOPRINE
  4. THYMIDINE [Concomitant]
     Active Substance: THYMIDINE
  5. PHYTOHEMAGGLUTININ [Concomitant]
     Active Substance: PHYTOHEMAGGLUTININ
  6. UNSPECIFIED INGREDIENT [Concomitant]
     Active Substance: UNSPECIFIED INGREDIENT

REACTIONS (2)
  - Tubulointerstitial nephritis [Recovered/Resolved]
  - Off label use [Recovered/Resolved]
